FAERS Safety Report 24230937 (Version 2)
Quarter: 2024Q4

REPORT INFORMATION
  Report Type: Spontaneous
  Country: BR (occurrence: BR)
  Receive Date: 20240821
  Receipt Date: 20241003
  Transmission Date: 20250114
  Serious: No
  Sender: BOEHRINGER INGELHEIM
  Company Number: BR-BoehringerIngelheim-2024-BI-045483

PATIENT
  Age: 59 Year
  Sex: Male

DRUGS (8)
  1. IPRATROPIUM BROMIDE [Suspect]
     Active Substance: IPRATROPIUM BROMIDE
     Indication: Asthma
  2. ATROVENT [Suspect]
     Active Substance: IPRATROPIUM BROMIDE
     Indication: Asthma
     Dosage: DROPS ?20 DROPS IN SALINE SOLUTION FOR NEBULIZATION.
     Route: 055
  3. BEROTEC [Suspect]
     Active Substance: FENOTEROL HYDROBROMIDE
     Indication: Asthma
     Dosage: DROPS?6 DROPS IN SALINE SOLUTION, TOGETHER WITH 20 DROPS LIQUID ATROVENT.
     Route: 055
  4. BEROTEC [Suspect]
     Active Substance: FENOTEROL HYDROBROMIDE
     Indication: Influenza
  5. ALBUTEROL [Suspect]
     Active Substance: ALBUTEROL
     Indication: Asthma
     Dosage: 4 PUFFS, 3 TO 4 TIMES A DAY?FORM OF ADMINISTRATION REPORTED AS ^SPRAY^ ONLY (ROUTE NOT ASKED)
  6. ALBUTEROL [Concomitant]
     Active Substance: ALBUTEROL
     Indication: Asthma
     Dosage: AEROSOL, RECOMMENDED USE 4 TIMES A DAY, WITH THE HELP OF THE SPACER.
     Route: 055
  7. PREDNISONE [Concomitant]
     Active Substance: PREDNISONE
     Indication: Influenza
     Dosage: 5MG, 2 TABLETS
  8. PREDNISONE [Concomitant]
     Active Substance: PREDNISONE
     Dosage: 10MG, 1 TABLET

REACTIONS (6)
  - Wrong dosage form [Not Recovered/Not Resolved]
  - Dyspnoea [Unknown]
  - Abdominal pain [Unknown]
  - Drug ineffective [Unknown]
  - Intentional product use issue [Unknown]
  - Tooth extraction [Unknown]

NARRATIVE: CASE EVENT DATE: 20240805
